FAERS Safety Report 9365693 (Version 1)
Quarter: 2013Q2

REPORT INFORMATION
  Report Type: Spontaneous
  Country: US (occurrence: None)
  Receive Date: 20130624
  Receipt Date: 20130624
  Transmission Date: 20140414
  Serious: Yes (Other)
  Sender: FDA-Public Use
  Company Number: None

PATIENT
  Age: 65 Year
  Sex: Male
  Weight: 88.45 kg

DRUGS (1)
  1. OXYCODONE [Suspect]
     Indication: BACK PAIN
     Dosage: 2 X 5 MG??
     Route: 048
     Dates: start: 20130401, end: 20130626

REACTIONS (2)
  - Dizziness [None]
  - Nausea [None]
